FAERS Safety Report 6054462-7 (Version None)
Quarter: 2009Q1

REPORT INFORMATION
  Report Type: 
  Country: None (occurrence: None)
  Receive Date: 20090123
  Receipt Date: 20090123
  Transmission Date: 20090719
  Serious: Yes (Hospitalization, Disabling)
  Sender: FDA-Public Use
  Company Number: None

PATIENT

DRUGS (1)
  1. MELOXICAM [Suspect]
     Indication: ARTHRITIS
     Dosage: 1 A DAY 1 A DAY PO
     Route: 048
     Dates: start: 20080111, end: 20080112

REACTIONS (2)
  - DIARRHOEA [None]
  - FAECES DISCOLOURED [None]
